FAERS Safety Report 5562988-5 (Version None)
Quarter: 2007Q4

REPORT INFORMATION
  Report Type: 
  Country: None (occurrence: None)
  Receive Date: 20071217
  Receipt Date: 20071214
  Transmission Date: 20080405
  Serious: Yes (Other)
  Sender: FDA-Public Use
  Company Number: A0698924A

PATIENT
  Sex: Female

DRUGS (2)
  1. ALLI [Suspect]
     Indication: DRUG USE FOR UNKNOWN INDICATION
     Route: 048
     Dates: start: 20070701
  2. MULTI-VITAMIN [Suspect]
     Indication: VITAMIN SUPPLEMENTATION
     Route: 048

REACTIONS (8)
  - APPENDICITIS [None]
  - BLOOD URINE PRESENT [None]
  - CRYSTAL URINE [None]
  - DRUG INTERACTION [None]
  - NEPHROLITHIASIS [None]
  - URINARY TRACT DISORDER [None]
  - URINARY TRACT INFECTION [None]
  - VOMITING [None]
